FAERS Safety Report 7329919-9 (Version None)
Quarter: 2011Q1

REPORT INFORMATION
  Report Type: 
  Country: None (occurrence: None)
  Receive Date: 20110303
  Receipt Date: 20110301
  Transmission Date: 20110831
  Serious: Yes (Other)
  Sender: FDA-Public Use
  Company Number: JP-PFIZER INC-2011034941

PATIENT
  Age: 51 Year
  Sex: Male
  Weight: 59 kg

DRUGS (5)
  1. CHAMPIX [Suspect]
     Indication: SMOKING CESSATION THERAPY
     Dosage: 0.5 MG/DAY
     Route: 048
     Dates: start: 20101215, end: 20101217
  2. NAUZELIN [Concomitant]
     Indication: NAUSEA
     Dosage: 10 MG, 3X/DAY
     Route: 048
     Dates: start: 20101215, end: 20110112
  3. CHAMPIX [Suspect]
     Dosage: 2 MG/DAY
     Route: 048
     Dates: start: 20101222, end: 20110126
  4. NAUZELIN [Concomitant]
     Indication: VOMITING
  5. CHAMPIX [Suspect]
     Dosage: 1 MG/DAY
     Route: 048
     Dates: start: 20101218, end: 20101221

REACTIONS (5)
  - MALAISE [None]
  - DIZZINESS POSTURAL [None]
  - DYSPNOEA [None]
  - CHEILITIS [None]
  - ECZEMA [None]
